FAERS Safety Report 10969349 (Version 1)
Quarter: 2015Q1

REPORT INFORMATION
  Report Type: Spontaneous
  Country: CA (occurrence: None)
  Receive Date: 20150327
  Receipt Date: 20150327
  Transmission Date: 20150721
  Serious: Yes (Hospitalization)
  Sender: FDA-Public Use
  Company Number: FK201501351

PATIENT
  Age: 70 Year
  Sex: Male
  Weight: 68 kg

DRUGS (9)
  1. PREDNISONE (PREDNISONE) [Suspect]
     Active Substance: PREDNISONE
     Indication: PRODUCT USED FOR UNKNOWN INDICATION
  2. FLOWER MAN SANG HUNG [Suspect]
     Active Substance: HERBALS
     Indication: PRODUCT USED FOR UNKNOWN INDICATION
  3. TAK-700 VS. PLACEBO (VALETHAMATE BROMIDE) [Suspect]
     Active Substance: ORTERONEL
     Indication: PRODUCT USED FOR UNKNOWN INDICATION
  4. LEUPROLIDE (LEUPRORELIN) [Suspect]
     Active Substance: LEUPROLIDE
     Indication: PRODUCT USED FOR UNKNOWN INDICATION
  5. ZOPICLONE (ZOPICLONE) [Suspect]
     Active Substance: ZOPICLONE
     Indication: PRODUCT USED FOR UNKNOWN INDICATION
  6. SALBUTAMOCICLESONIDE [Suspect]
     Active Substance: ALBUTEROL SULFATE
     Indication: PRODUCT USED FOR UNKNOWN INDICATION
  7. CORDYCEPS POWDER [Suspect]
     Active Substance: DIETARY SUPPLEMENT
  8. LEVOTHYROXINE SODIUM. [Suspect]
     Active Substance: LEVOTHYROXINE SODIUM
     Indication: PRODUCT USED FOR UNKNOWN INDICATION
     Route: 048
  9. MONTELUKAST [Suspect]
     Active Substance: MONTELUKAST SODIUM
     Indication: PRODUCT USED FOR UNKNOWN INDICATION

REACTIONS (15)
  - Product contamination chemical [None]
  - Aspartate aminotransferase increased [None]
  - Blood pressure decreased [None]
  - Alcohol withdrawal syndrome [None]
  - Herbal toxicity [None]
  - Alanine aminotransferase increased [None]
  - Thrombocytopenia [None]
  - Agitation [None]
  - Thyroiditis [None]
  - Gastroenteritis [None]
  - Hyponatraemia [None]
  - Atrial fibrillation [None]
  - Thyrotoxic crisis [None]
  - Hypovolaemia [None]
  - Rhabdomyolysis [None]
